FAERS Safety Report 23595486 (Version 1)
Quarter: 2024Q1

REPORT INFORMATION
  Report Type: Spontaneous
  Country: US (occurrence: None)
  Receive Date: 20240304
  Receipt Date: 20240304
  Transmission Date: 20240410
  Serious: Yes (unspecified)
  Sender: FDA-Public Use
  Company Number: None

PATIENT
  Age: 39 Year
  Sex: Female
  Weight: 96.16 kg

DRUGS (1)
  1. LILETTA [Suspect]
     Active Substance: LEVONORGESTREL

REACTIONS (6)
  - Abdominal pain [None]
  - Uterine pain [None]
  - Depression [None]
  - Suicidal ideation [None]
  - Haemorrhagic ovarian cyst [None]
  - Uterine leiomyoma [None]

NARRATIVE: CASE EVENT DATE: 20240227
